FAERS Safety Report 16416912 (Version 2)
Quarter: 2019Q2

REPORT INFORMATION
  Report Type: Spontaneous
  Country: US (occurrence: US)
  Receive Date: 20190611
  Receipt Date: 20190625
  Transmission Date: 20190711
  Serious: Yes (Other)
  Sender: FDA-Public Use
  Company Number: US-ASTRAZENECA-2018SF34880

PATIENT
  Age: 687 Month
  Sex: Female

DRUGS (44)
  1. PRILOSEC OTC [Suspect]
     Active Substance: OMEPRAZOLE MAGNESIUM
     Dosage: GENERIC OMEPRAZOLE
     Route: 065
  2. PRILOSEC OTC [Suspect]
     Active Substance: OMEPRAZOLE MAGNESIUM
     Dosage: GENERIC OMEPRAZOLE
     Route: 065
  3. CARTIA [Concomitant]
  4. CETRIZINE [Concomitant]
     Active Substance: CETIRIZINE HYDROCHLORIDE
  5. PRILOSEC OTC [Suspect]
     Active Substance: OMEPRAZOLE MAGNESIUM
     Route: 048
     Dates: start: 200801, end: 201512
  6. FAMOTIDINE. [Concomitant]
     Active Substance: FAMOTIDINE
  7. ALPRAZOLAM. [Concomitant]
     Active Substance: ALPRAZOLAM
  8. FLUCONAZOLE. [Concomitant]
     Active Substance: FLUCONAZOLE
  9. BENZTROPINE. [Concomitant]
     Active Substance: BENZTROPINE
  10. HYDRALAZINE [Concomitant]
     Active Substance: HYDRALAZINE HYDROCHLORIDE
  11. LYRICA [Concomitant]
     Active Substance: PREGABALIN
  12. METOLAZONE. [Concomitant]
     Active Substance: METOLAZONE
  13. ESCITALOPRAM [Concomitant]
     Active Substance: ESCITALOPRAM OXALATE
  14. NAPROXEN. [Concomitant]
     Active Substance: NAPROXEN
  15. ZIPRASIDONE. [Concomitant]
     Active Substance: ZIPRASIDONE
  16. LINZESS [Concomitant]
     Active Substance: LINACLOTIDE
  17. IMITREX [Concomitant]
     Active Substance: SUMATRIPTAN SUCCINATE
  18. ALLOPURINOL. [Concomitant]
     Active Substance: ALLOPURINOL
  19. CETIRIZINE [Concomitant]
     Active Substance: CETIRIZINE HYDROCHLORIDE
  20. HYDRALAZINE [Concomitant]
     Active Substance: HYDRALAZINE HYDROCHLORIDE
  21. PROMETHAZINE [Concomitant]
     Active Substance: PROMETHAZINE\PROMETHAZINE HYDROCHLORIDE
  22. BUPROPION. [Concomitant]
     Active Substance: BUPROPION
  23. DULOXETINE. [Concomitant]
     Active Substance: DULOXETINE
  24. ONDANSETRON [Concomitant]
     Active Substance: ONDANSETRON
  25. METOPROLOL SUCCINATE. [Concomitant]
     Active Substance: METOPROLOL SUCCINATE
  26. FUROSEMIDE. [Concomitant]
     Active Substance: FUROSEMIDE
  27. SYMBICORT [Concomitant]
     Active Substance: BUDESONIDE\FORMOTEROL FUMARATE DIHYDRATE
  28. HYDROXYZINE PAMOATE. [Concomitant]
     Active Substance: HYDROXYZINE PAMOATE
  29. SUMATRIPTAN. [Concomitant]
     Active Substance: SUMATRIPTAN
  30. IPRATROPIUM [Concomitant]
     Active Substance: IPRATROPIUM
  31. NEXIUM [Suspect]
     Active Substance: ESOMEPRAZOLE MAGNESIUM
     Route: 048
     Dates: start: 200801, end: 201512
  32. NEXIUM [Suspect]
     Active Substance: ESOMEPRAZOLE MAGNESIUM
     Route: 048
     Dates: start: 20100601, end: 20170801
  33. FUROSEMIDE. [Concomitant]
     Active Substance: FUROSEMIDE
  34. CYCLOBENZAPRINE. [Concomitant]
     Active Substance: CYCLOBENZAPRINE
  35. ROSUVASTATIN. [Concomitant]
     Active Substance: ROSUVASTATIN
  36. SUMATRIPTAN. [Concomitant]
     Active Substance: SUMATRIPTAN
  37. LEXAPRO [Concomitant]
     Active Substance: ESCITALOPRAM OXALATE
  38. VYVANSE [Concomitant]
     Active Substance: LISDEXAMFETAMINE DIMESYLATE
  39. OXYCODONE [Concomitant]
     Active Substance: OXYCODONE
  40. LORATADINE. [Concomitant]
     Active Substance: LORATADINE
  41. PRILOSEC OTC [Suspect]
     Active Substance: OMEPRAZOLE MAGNESIUM
     Route: 048
     Dates: start: 20080101, end: 20100101
  42. METFORMIN [Concomitant]
     Active Substance: METFORMIN HYDROCHLORIDE
  43. DOXYCYCLINE. [Concomitant]
     Active Substance: DOXYCYCLINE
  44. METHOCARBAMOL. [Concomitant]
     Active Substance: METHOCARBAMOL

REACTIONS (7)
  - Tubulointerstitial nephritis [Unknown]
  - End stage renal disease [Unknown]
  - Dyspepsia [Unknown]
  - Renal failure [Unknown]
  - Chronic kidney disease [Unknown]
  - Acute kidney injury [Unknown]
  - Renal injury [Unknown]

NARRATIVE: CASE EVENT DATE: 201803
